FAERS Safety Report 7979550-7 (Version None)
Quarter: 2011Q4

REPORT INFORMATION
  Report Type: 
  Country: None (occurrence: None)
  Receive Date: 20111214
  Receipt Date: 20111201
  Transmission Date: 20120403
  Serious: Yes (Hospitalization)
  Sender: FDA-Public Use
  Company Number: ES-MPIJNJ-2011-06130

PATIENT

DRUGS (3)
  1. PREDNISONE TAB [Suspect]
     Indication: MULTIPLE MYELOMA
     Dosage: 85 MG, UNK
     Route: 048
     Dates: start: 20111025, end: 20111028
  2. MELPHALAN HYDROCHLORIDE [Suspect]
     Indication: MULTIPLE MYELOMA
     Dosage: 13 MG, UNK
     Route: 048
     Dates: start: 20111025, end: 20111028
  3. VELCADE [Suspect]
     Indication: MULTIPLE MYELOMA
     Dosage: 1.83 MG, UNK
     Route: 042
     Dates: start: 20111025, end: 20111125

REACTIONS (1)
  - GENERAL PHYSICAL HEALTH DETERIORATION [None]
